FAERS Safety Report 4508163-4 (Version None)
Quarter: 2004Q4

REPORT INFORMATION
  Report Type: 
  Country: None (occurrence: None)
  Receive Date: 20041123
  Receipt Date: 20031030
  Transmission Date: 20050328
  Serious: No
  Sender: FDA-Public Use
  Company Number: US-GLAXOSMITHKLINE-A0432272A

PATIENT
  Age: 47 Year
  Sex: Female

DRUGS (8)
  1. WELLBUTRIN [Suspect]
     Indication: FOOD CRAVING
     Dosage: 100MG PER DAY
     Route: 048
     Dates: start: 20031024
  2. ZOLOFT [Concomitant]
  3. HYDROCHLOROTHIAZIDE [Concomitant]
  4. ALLOPURINOL [Concomitant]
  5. POTASSIUM CITRATE [Concomitant]
  6. KLOR-CON [Concomitant]
  7. IBUPROFEN [Concomitant]
  8. CHROMIUM [Concomitant]

REACTIONS (4)
  - EUPHORIC MOOD [None]
  - FATIGUE [None]
  - INSOMNIA [None]
  - SOMNOLENCE [None]
